FAERS Safety Report 6198472-8 (Version None)
Quarter: 2009Q2

REPORT INFORMATION
  Report Type: 
  Country: None (occurrence: None)
  Receive Date: 20090521
  Receipt Date: 20090513
  Transmission Date: 20091009
  Serious: Yes (Hospitalization)
  Sender: FDA-Public Use
  Company Number: PHHY2009FR18472

PATIENT
  Age: 27 Year
  Sex: Male

DRUGS (1)
  1. VOLTAREN [Suspect]
     Dosage: UNK
     Dates: start: 20090412, end: 20090414

REACTIONS (9)
  - CELLULITIS [None]
  - HEADACHE [None]
  - INFLAMMATION [None]
  - LYMPHADENOPATHY [None]
  - MOBILITY DECREASED [None]
  - MUSCULOSKELETAL DISORDER [None]
  - MUSCULOSKELETAL PAIN [None]
  - OEDEMA [None]
  - PYREXIA [None]
